FAERS Safety Report 3642702 (Version 2)
Quarter: 2016Q1

REPORT INFORMATION
  Report Type: Spontaneous
  Country: JP (occurrence: JP)
  Receive Date: 20010417
  Receipt Date: 20160125
  Transmission Date: 20160526
  Serious: Yes (Other)
  Sender: FDA-Public Use
  Company Number: PHBS1998JP31206

PATIENT
  Age: 59 Year
  Sex: Male
  Weight: 47 kg

DRUGS (7)
  1. CEREKINON [Concomitant]
     Active Substance: TRIMEBUTINE
     Route: 065
     Dates: start: 19970613
  2. ISONIAZID. [Suspect]
     Active Substance: ISONIAZID
     Indication: TUBERCULOSIS
     Dates: start: 19970613
  3. ETHAMBUTOL [Suspect]
     Active Substance: ETHAMBUTOL HYDROCHLORIDE
     Indication: TUBERCULOSIS
     Dates: start: 19970613
  4. RIFAMPICIN [Suspect]
     Active Substance: RIFAMPIN
     Indication: TUBERCULOSIS
     Route: 065
     Dates: start: 19970613
  5. ACENALIN [Concomitant]
     Route: 065
     Dates: start: 19970613
  6. SLOW-K [Suspect]
     Active Substance: POTASSIUM CHLORIDE
     Route: 048
     Dates: start: 19970613, end: 19970620
  7. SLOW-K [Suspect]
     Active Substance: POTASSIUM CHLORIDE
     Route: 048
     Dates: start: 19970613, end: 19970701

REACTIONS (3)
  - Gastrointestinal ulcer [Recovered/Resolved]
  - Oesophageal stenosis [None]
  - Oesophageal ulcer [None]

NARRATIVE: CASE EVENT DATE: 19970620
